FAERS Safety Report 24387415 (Version 3)
Quarter: 2025Q1

REPORT INFORMATION
  Report Type: Spontaneous
  Country: CA (occurrence: CA)
  Receive Date: 20241002
  Receipt Date: 20250225
  Transmission Date: 20250409
  Serious: Yes (Life-Threatening, Other)
  Sender: MYLAN
  Company Number: CA-MYLANLABS-2024M1087472

PATIENT
  Age: 13 Year
  Sex: Male

DRUGS (10)
  1. GABAPENTIN [Suspect]
     Active Substance: GABAPENTIN
     Indication: Pain management
  2. GABAPENTIN [Suspect]
     Active Substance: GABAPENTIN
     Indication: Cystitis interstitial
  3. MORPHINE [Suspect]
     Active Substance: MORPHINE
     Indication: Pain management
  4. MORPHINE [Suspect]
     Active Substance: MORPHINE
     Indication: Cystitis interstitial
  5. HUMAN IMMUNOGLOBULIN G [Suspect]
     Active Substance: HUMAN IMMUNOGLOBULIN G
     Indication: Cystitis interstitial
  6. HUMAN IMMUNOGLOBULIN G [Suspect]
     Active Substance: HUMAN IMMUNOGLOBULIN G
     Indication: Multisystem inflammatory syndrome in children
  7. SIROLIMUS [Suspect]
     Active Substance: SIROLIMUS
     Indication: Cystitis interstitial
  8. SIROLIMUS [Suspect]
     Active Substance: SIROLIMUS
     Indication: Pain management
  9. MORPHINE [Suspect]
     Active Substance: MORPHINE
     Indication: Pain management
  10. MORPHINE [Suspect]
     Active Substance: MORPHINE
     Indication: Cystitis interstitial

REACTIONS (9)
  - Anaphylactic reaction [Recovered/Resolved]
  - Chills [Recovered/Resolved]
  - Livedo reticularis [Recovered/Resolved]
  - Oxygen saturation decreased [Recovered/Resolved]
  - Tachycardia [Recovered/Resolved]
  - Dyspnoea [Recovered/Resolved]
  - Drug ineffective [Recovered/Resolved]
  - Drug ineffective for unapproved indication [Recovered/Resolved]
  - Off label use [Recovered/Resolved]
